FAERS Safety Report 21339537 (Version 3)
Quarter: 2023Q1

REPORT INFORMATION
  Report Type: Report from Study
  Country: US (occurrence: US)
  Receive Date: 20220915
  Receipt Date: 20230203
  Transmission Date: 20230417
  Serious: No
  Sender: FDA-Public Use
  Company Number: US-SA-SAC20220912002025

PATIENT
  Age: 67 Year
  Sex: Male
  Weight: 104.7 kg

DRUGS (2)
  1. JEVTANA [Suspect]
     Active Substance: CABAZITAXEL
     Indication: Bladder cancer
     Dosage: 60 MG/ML, Q4W
     Route: 043
     Dates: start: 20220512
  2. CABAZITAXEL [Suspect]
     Active Substance: CABAZITAXEL
     Indication: Bladder cancer
     Dosage: 60 MG/ML, Q4W
     Route: 043
     Dates: start: 20220512

REACTIONS (3)
  - Weight fluctuation [Recovered/Resolved]
  - Weight increased [Unknown]
  - Product use in unapproved indication [Unknown]

NARRATIVE: CASE EVENT DATE: 20220512
